FAERS Safety Report 12845116 (Version 1)
Quarter: 2016Q4

REPORT INFORMATION
  Report Type: Spontaneous
  Country: US (occurrence: US)
  Receive Date: 20161013
  Receipt Date: 20161013
  Transmission Date: 20170207
  Serious: No
  Sender: FDA-Public Use
  Company Number: GXBR2016US001966

PATIENT
  Sex: Female
  Weight: 58.96 kg

DRUGS (1)
  1. NYSTATIN+TRIAMCINOLONE [Suspect]
     Active Substance: NYSTATIN\TRIAMCINOLONE ACETONIDE
     Indication: VAGINAL INFECTION
     Dosage: UNK DF, BID
     Route: 061
     Dates: start: 201605, end: 20160524

REACTIONS (1)
  - Skin burning sensation [Recovering/Resolving]
